FAERS Safety Report 9748626 (Version 1)
Quarter: 2013Q4

REPORT INFORMATION
  Report Type: Spontaneous
  Country: US (occurrence: None)
  Receive Date: 20131209
  Receipt Date: 20131209
  Transmission Date: 20140711
  Serious: No
  Sender: FDA-Public Use
  Company Number: None

PATIENT
  Age: 67 Year
  Sex: Male
  Weight: 122.2 kg

DRUGS (1)
  1. ALFA 2 INTERFERON 2B [Suspect]
     Dates: end: 20131122

REACTIONS (4)
  - Rhabdomyolysis [None]
  - Hypotension [None]
  - Abdominal pain [None]
  - Pain [None]
